FAERS Safety Report 17516051 (Version 2)
Quarter: 2020Q1

REPORT INFORMATION
  Report Type: Spontaneous
  Country: DE (occurrence: DE)
  Receive Date: 20200309
  Receipt Date: 20200316
  Transmission Date: 20200409
  Serious: Yes (Other)
  Sender: FDA-Public Use
  Company Number: DE-PFIZER INC-2020097505

PATIENT

DRUGS (2)
  1. CYTOTEC [Suspect]
     Active Substance: MISOPROSTOL
     Indication: GESTATIONAL HYPERTENSION
  2. CYTOTEC [Suspect]
     Active Substance: MISOPROSTOL
     Indication: LABOUR INDUCTION
     Dosage: 50 UG, UNK
     Route: 064
     Dates: start: 20190923, end: 20190923

REACTIONS (4)
  - Foetal exposure during delivery [Recovered/Resolved]
  - Neonatal respiratory distress [Recovered/Resolved]
  - Neonatal hypoxia [Recovered/Resolved]
  - Arrhythmia neonatal [Recovered/Resolved]

NARRATIVE: CASE EVENT DATE: 20190923
